FAERS Safety Report 4902780-5 (Version None)
Quarter: 2006Q1

REPORT INFORMATION
  Report Type: 
  Country: None (occurrence: None)
  Receive Date: 20060207
  Receipt Date: 20060201
  Transmission Date: 20060701
  Serious: Yes (Other)
  Sender: FDA-Public Use
  Company Number: CA-GLAXOSMITHKLINE-A0592522A

PATIENT
  Age: 63 Year
  Sex: Female

DRUGS (6)
  1. WELLBUTRIN SR [Suspect]
     Indication: DRUG USE FOR UNKNOWN INDICATION
     Dosage: 150MG PER DAY
     Route: 048
  2. ACETAMINOPHEN [Concomitant]
  3. LEVOTHYROXINE SODIUM [Concomitant]
     Route: 048
  4. LORAZEPAM [Concomitant]
     Route: 048
  5. MAALOX FAST BLOCKER [Concomitant]
  6. TEMAZEPAM [Concomitant]
     Route: 048

REACTIONS (6)
  - BLOOD CREATINE PHOSPHOKINASE ABNORMAL [None]
  - BODY TEMPERATURE INCREASED [None]
  - HEART RATE INCREASED [None]
  - HYPERTENSION [None]
  - LEUKOCYTOSIS [None]
  - RESPIRATORY RATE [None]
